FAERS Safety Report 10254765 (Version 2)
Quarter: 2014Q3

REPORT INFORMATION
  Report Type: Spontaneous
  Country: AU (occurrence: AU)
  Receive Date: 20140624
  Receipt Date: 20140805
  Transmission Date: 20150326
  Serious: Yes (Other)
  Sender: FDA-Public Use
  Company Number: AU-US-EMD SERONO, INC.-7299026

PATIENT
  Sex: Female

DRUGS (2)
  1. GONAL-F [Suspect]
     Active Substance: FOLLITROPIN
     Indication: PRODUCT USED FOR UNKNOWN INDICATION
  2. GONAL-F [Suspect]
     Active Substance: FOLLITROPIN

REACTIONS (3)
  - Aneurysm [Unknown]
  - Subarachnoid haemorrhage [Unknown]
  - Ovarian hyperstimulation syndrome [Recovered/Resolved]
